FAERS Safety Report 11043200 (Version 1)
Quarter: 2015Q2

REPORT INFORMATION
  Report Type: Other
  Country: IT (occurrence: IT)
  Receive Date: 20150417
  Receipt Date: 20150417
  Transmission Date: 20150821
  Serious: Yes (Other)
  Sender: FDA-Public Use
  Company Number: IT-MYLANLABS-2015M1011359

PATIENT

DRUGS (1)
  1. QUETIAPINA MYLAN GENERICS [Suspect]
     Active Substance: QUETIAPINE
     Indication: PRODUCT USED FOR UNKNOWN INDICATION
     Dosage: 1 DF DAILY
     Route: 048
     Dates: start: 20150115, end: 20150201

REACTIONS (2)
  - Nervousness [Unknown]
  - Irritability [Unknown]

NARRATIVE: CASE EVENT DATE: 20150201
